FAERS Safety Report 5300393-7 (Version None)
Quarter: 2007Q2

REPORT INFORMATION
  Report Type: 
  Country: None (occurrence: None)
  Receive Date: 20070413
  Receipt Date: 20070413
  Transmission Date: 20071010
  Serious: Yes (Other)
  Sender: FDA-Public Use
  Company Number: None

PATIENT
  Age: 53 Year
  Sex: Male
  Weight: 65.318 kg

DRUGS (1)
  1. SERTRALINE [Suspect]
     Indication: ANXIETY
     Dosage: 100MG 1 QD
     Dates: start: 20060701

REACTIONS (3)
  - DIARRHOEA [None]
  - DYSARTHRIA [None]
  - PHARMACEUTICAL PRODUCT COMPLAINT [None]
